FAERS Safety Report 7537756-5 (Version None)
Quarter: 2011Q2

REPORT INFORMATION
  Report Type: 
  Country: None (occurrence: None)
  Receive Date: 20110609
  Receipt Date: 20110526
  Transmission Date: 20111010
  Serious: Yes (Hospitalization)
  Sender: FDA-Public Use
  Company Number: CA-JNJFOC-20110512863

PATIENT
  Sex: Male
  Weight: 87.2 kg

DRUGS (7)
  1. REMICADE [Suspect]
     Route: 042
     Dates: start: 20090601
  2. VITAMIN B-12 [Concomitant]
  3. REMICADE [Suspect]
     Indication: CROHN'S DISEASE
     Route: 042
     Dates: start: 20110415
  4. ASPIRIN [Concomitant]
     Route: 048
  5. IMURAN [Concomitant]
     Route: 048
  6. SCOPOLAMINE [Concomitant]
  7. FE SULFATE [Concomitant]

REACTIONS (3)
  - ABDOMINAL PAIN UPPER [None]
  - NAUSEA [None]
  - DIARRHOEA [None]
